FAERS Safety Report 6311090-3 (Version None)
Quarter: 2009Q3

REPORT INFORMATION
  Report Type: 
  Country: None (occurrence: None)
  Receive Date: 20090817
  Receipt Date: 20090814
  Transmission Date: 20100115
  Serious: Yes (Hospitalization)
  Sender: FDA-Public Use
  Company Number: GB-PFIZER INC-2009234613

PATIENT

DRUGS (1)
  1. ALDACTONE [Suspect]

REACTIONS (1)
  - THROMBOCYTOPENIA [None]
